FAERS Safety Report 13135471 (Version 2)
Quarter: 2017Q1

REPORT INFORMATION
  Report Type: Spontaneous
  Country: KR (occurrence: KR)
  Receive Date: 20170120
  Receipt Date: 20170124
  Transmission Date: 20170428
  Serious: Yes (Hospitalization, Other)
  Sender: FDA-Public Use
  Company Number: KR-ELI_LILLY_AND_COMPANY-KR201701003809

PATIENT
  Sex: Female

DRUGS (2)
  1. FORSTEO [Suspect]
     Active Substance: TERIPARATIDE
     Dosage: UNK, UNKNOWN
     Route: 065
     Dates: start: 20161216
  2. FORSTEO [Suspect]
     Active Substance: TERIPARATIDE
     Indication: VERTEBRAL LESION
     Dosage: UNK UNK, UNKNOWN
     Route: 065
     Dates: start: 2014

REACTIONS (11)
  - Lung neoplasm malignant [Unknown]
  - Spinal compression fracture [Recovered/Resolved]
  - Dizziness [Not Recovered/Not Resolved]
  - Headache [Unknown]
  - Pulmonary tuberculosis [Unknown]
  - Spinal fracture [Recovered/Resolved]
  - Herpes zoster [Unknown]
  - Asthenia [Unknown]
  - Dyspepsia [Not Recovered/Not Resolved]
  - Dysstasia [Unknown]
  - Back pain [Unknown]

NARRATIVE: CASE EVENT DATE: 201611
